FAERS Safety Report 8494248-7 (Version None)
Quarter: 2012Q2

REPORT INFORMATION
  Report Type: 
  Country: None (occurrence: None)
  Receive Date: 20120628
  Receipt Date: 20120615
  Transmission Date: 20120825
  Serious: Yes (Hospitalization)
  Sender: FDA-Public Use
  Company Number: DSM-2012-00672

PATIENT
  Age: 87 Year
  Sex: Female

DRUGS (10)
  1. SEVIKAR (OLMESARTAN MEDOXOMIL, AMLODIPINE BESILATE) (TABLET) (OLMESART [Suspect]
     Indication: HYPERTENSION
     Dosage: 40/10 MG,ORAL
     Route: 048
     Dates: start: 20120526, end: 20120601
  2. RAMIPRIL [Suspect]
     Indication: HYPERTENSION
     Dosage: ORAL
     Route: 048
     Dates: start: 20120526, end: 20120601
  3. CELECTOL (CELIPROLOL HYDROCHLORIDE) (CELIPROLOL HYDROCHLORIDE) [Concomitant]
  4. FUROSEMIDE [Concomitant]
  5. ALLOPURINOL [Concomitant]
  6. FOSAVANCE (COLECALCIFEROL, ALENDRONATE SODIUM) (COLECALCIFEROL, ALENDR [Concomitant]
  7. DIAMICRON (GLICLAZIDE) (GLICLAZIDE) [Concomitant]
  8. PRAVADUAL (ACETYLSALICYLIC ACID, PRAVASTATIN SODIUM) (ACETYLSALICYLIC [Concomitant]
  9. LOXEN (NICARDIPINE HYDROCHLORIDE) (NICARDIPINE HYDROCHLORIDE) [Concomitant]
  10. METFORMINE (METFORMIN HYDROCHLORIDE) (METFORMIN HYDROCHLORIDE) [Concomitant]

REACTIONS (2)
  - FACE OEDEMA [None]
  - TONGUE OEDEMA [None]
